FAERS Safety Report 14634184 (Version 10)
Quarter: 2019Q3

REPORT INFORMATION
  Report Type: Spontaneous
  Country: US (occurrence: US)
  Receive Date: 20180314
  Receipt Date: 20190801
  Transmission Date: 20191004
  Serious: Yes (Hospitalization, Other)
  Sender: FDA-Public Use
  Company Number: US-BIOGEN-2018BI00530856

PATIENT
  Age: 62 Year
  Sex: Male

DRUGS (11)
  1. AVONEX [Suspect]
     Active Substance: INTERFERON BETA-1A
     Indication: MULTIPLE SCLEROSIS
     Route: 065
     Dates: start: 1999
  2. AVONEX [Suspect]
     Active Substance: INTERFERON BETA-1A
     Route: 050
  3. AVONEX [Suspect]
     Active Substance: INTERFERON BETA-1A
     Route: 050
     Dates: start: 20180330, end: 2019
  4. WELLBUTRIN [Concomitant]
     Active Substance: BUPROPION HYDROCHLORIDE
     Indication: PRODUCT USED FOR UNKNOWN INDICATION
     Route: 065
  5. AVONEX [Suspect]
     Active Substance: INTERFERON BETA-1A
     Route: 050
     Dates: start: 20010625, end: 20170620
  6. DIAZEPAM. [Concomitant]
     Active Substance: DIAZEPAM
     Indication: PRODUCT USED FOR UNKNOWN INDICATION
     Route: 065
  7. TRAMAZOLE (NOS) [Concomitant]
     Indication: PRODUCT USED FOR UNKNOWN INDICATION
     Route: 065
  8. AVONEX [Suspect]
     Active Substance: INTERFERON BETA-1A
     Route: 050
     Dates: start: 20010625, end: 201707
  9. AVONEX [Suspect]
     Active Substance: INTERFERON BETA-1A
     Route: 050
  10. AVONEX [Suspect]
     Active Substance: INTERFERON BETA-1A
     Route: 050
     Dates: start: 2001, end: 2017
  11. AVONEX [Suspect]
     Active Substance: INTERFERON BETA-1A
     Route: 050
     Dates: start: 20180330

REACTIONS (12)
  - Macular detachment [Not Recovered/Not Resolved]
  - Cataract [Not Recovered/Not Resolved]
  - Concussion [Unknown]
  - Blindness [Not Recovered/Not Resolved]
  - Macular degeneration [Not Recovered/Not Resolved]
  - Drug dependence [Unknown]
  - Eye pain [Not Recovered/Not Resolved]
  - Headache [Recovered/Resolved]
  - Photophobia [Not Recovered/Not Resolved]
  - Gait disturbance [Not Recovered/Not Resolved]
  - Multiple sclerosis [Unknown]
  - Migraine [Not Recovered/Not Resolved]

NARRATIVE: CASE EVENT DATE: 2017
